FAERS Safety Report 7166686-6 (Version None)
Quarter: 2010Q4

REPORT INFORMATION
  Report Type: 
  Country: None (occurrence: None)
  Receive Date: 20101216
  Receipt Date: 20101207
  Transmission Date: 20110411
  Serious: Yes (Hospitalization)
  Sender: FDA-Public Use
  Company Number: US-ROCHE-633710

PATIENT
  Sex: Female

DRUGS (5)
  1. BEVACIZUMAB [Suspect]
     Route: 065
  2. PLACEBO [Suspect]
     Dosage: 150 UNK, QD
     Route: 048
     Dates: start: 20090313
  3. FLUOROURACIL [Suspect]
     Dosage: UNK
     Route: 065
  4. LEUCOVORIN CALCIUM [Suspect]
     Route: 065
  5. IRINOTECAN HYDROCHLORIDE [Suspect]
     Route: 065

REACTIONS (2)
  - CHEST PAIN [None]
  - MALIGNANT HYPERTENSION [None]
